FAERS Safety Report 8374421-9 (Version None)
Quarter: 2012Q2

REPORT INFORMATION
  Report Type: 
  Country: None (occurrence: None)
  Receive Date: 20120521
  Receipt Date: 20120515
  Transmission Date: 20120825
  Serious: Yes (Life-Threatening, Other)
  Sender: FDA-Public Use
  Company Number: US-ASTRAZENECA-2011SE54758

PATIENT
  Age: 65 Year
  Sex: Male

DRUGS (18)
  1. BENAZEPRIL HYDROCHLORIDE [Concomitant]
  2. NITROGLYCERIN [Concomitant]
     Indication: CHEST PAIN
     Route: 060
  3. ALLOPURINOL [Concomitant]
  4. CARVEDILOL [Concomitant]
  5. ISOSORBIDE DINITRATE [Concomitant]
  6. MAGNESIUM [Concomitant]
  7. CRESTOR [Suspect]
     Route: 048
  8. COQ10 [Concomitant]
  9. ZETIA [Concomitant]
  10. GLIPIZIDE [Concomitant]
  11. ASPIRIN [Concomitant]
  12. SYNTHROID [Concomitant]
  13. LYRICA [Concomitant]
  14. LYSINE HCL [Concomitant]
  15. GABAPENTIN [Concomitant]
  16. LASIX [Concomitant]
  17. PLAVIX [Concomitant]
  18. JANUVIA [Concomitant]

REACTIONS (6)
  - UPPER LIMB FRACTURE [None]
  - ADVERSE EVENT [None]
  - ATRIOVENTRICULAR BLOCK [None]
  - DIABETES MELLITUS [None]
  - ACCIDENT [None]
  - CARDIAC ARREST [None]
